FAERS Safety Report 9916084 (Version 1)
Quarter: 2014Q1

REPORT INFORMATION
  Report Type: Spontaneous
  Country: ES (occurrence: ES)
  Receive Date: 20140221
  Receipt Date: 20140221
  Transmission Date: 20141002
  Serious: Yes (Hospitalization)
  Sender: FDA-Public Use
  Company Number: ES-TEVA-462943ISR

PATIENT
  Age: 93 Year
  Sex: Female

DRUGS (12)
  1. CAPTOPRIL [Suspect]
     Indication: HYPERTENSION
     Dosage: 25 MILLIGRAM DAILY;
     Route: 048
     Dates: start: 201203, end: 20130321
  2. LOSARTAN HYDROCHLOROTHIAZIDE RATIOPHARM 100MG/12.5MG COMPRIMIDOS RECUB [Suspect]
     Indication: HYPERTENSION
     Dosage: 100 MILLIGRAM DAILY;
     Route: 048
     Dates: end: 20130331
  3. FUROSEMIDE [Suspect]
     Indication: CARDIAC FAILURE
     Dosage: 80 MILLIGRAM DAILY;
     Route: 048
     Dates: start: 20130314, end: 20130321
  4. SINTROM 4MG COMPRIMIDOS, 20 COMPRIMIDOS [Concomitant]
     Indication: ATRIAL FIBRILLATION
     Route: 048
  5. AMLODIPINE [Concomitant]
     Indication: ATRIAL FIBRILLATION
     Dosage: 10 MILLIGRAM DAILY;
     Route: 048
     Dates: start: 201212, end: 20130321
  6. LORMETAZEPAM [Concomitant]
     Indication: INSOMNIA
     Dosage: 1 MILLIGRAM DAILY;
     Route: 048
     Dates: start: 201211
  7. ATROVENT [Concomitant]
  8. RENITIDINE [Concomitant]
  9. LANTANON [Concomitant]
  10. SALBUTAMOL [Concomitant]
  11. SERETIDE [Concomitant]
  12. SPIRIVA [Concomitant]

REACTIONS (5)
  - Renal failure acute [Recovered/Resolved]
  - Respiratory failure [Unknown]
  - Dyspnoea at rest [Unknown]
  - Decreased appetite [Unknown]
  - Hypophagia [Unknown]
